FAERS Safety Report 9631482 (Version 1)
Quarter: 2013Q4

REPORT INFORMATION
  Report Type: Spontaneous
  Country: CA (occurrence: None)
  Receive Date: 20131007
  Receipt Date: 20131007
  Transmission Date: 20140711
  Serious: Yes (Other)
  Sender: FDA-Public Use
  Company Number: 2013035576

PATIENT
  Age: 73 Year
  Sex: Male

DRUGS (1)
  1. PRIVIGEN (IMMUNE GLOBULIN INTRAVENOUS (HUMAN) 10% LIQUID) [Suspect]
     Route: 042
     Dates: start: 20130402

REACTIONS (5)
  - Pyelonephritis acute [None]
  - Escherichia infection [None]
  - Febrile nonhaemolytic transfusion reaction [None]
  - Tremor [None]
  - Dyspnoea [None]
